FAERS Safety Report 14491669 (Version 2)
Quarter: 2018Q1

REPORT INFORMATION
  Report Type: Spontaneous
  Country: IT (occurrence: IT)
  Receive Date: 20180206
  Receipt Date: 20180328
  Transmission Date: 20180509
  Serious: Yes (Hospitalization)
  Sender: FDA-Public Use
  Company Number: IT-MYLANLABS-2018M1006862

PATIENT
  Age: 57 Year
  Sex: Male

DRUGS (11)
  1. AMPHOTERICIN B LIPID COMPLEX [Suspect]
     Active Substance: AMPHOTERICIN B
     Dosage: 3 MG/KG, UNK
     Route: 042
  2. MEGLUMINE ANTIMONATE [Suspect]
     Active Substance: MEGLUMINE ANTIMONIATE
     Indication: LEISHMANIASIS
     Dosage: 1 DF, CYCLE
     Dates: start: 1999
  3. PREDNISONE. [Suspect]
     Active Substance: PREDNISONE
     Indication: IMMUNOSUPPRESSION
     Dosage: UNK
     Route: 065
  4. GLUCANTIME [Suspect]
     Active Substance: MEGLUMINE ANTIMONIATE
     Dosage: UNK
     Route: 065
  5. PREDNISONE. [Suspect]
     Active Substance: PREDNISONE
     Dosage: REDUCED DOSE
     Route: 065
  6. AMPHOTERICIN B LIPID COMPLEX [Suspect]
     Active Substance: AMPHOTERICIN B
     Dosage: 3 MG/KG, UNK, DAY 17
     Route: 042
  7. AMPHOTERICIN B LIPID COMPLEX [Suspect]
     Active Substance: AMPHOTERICIN B
     Dosage: 3 MG/KG, UNK, DAY 24
     Route: 042
  8. AZATHIOPRINE. [Suspect]
     Active Substance: AZATHIOPRINE
     Indication: IMMUNOSUPPRESSION
     Dosage: UNK
     Route: 065
  9. AMPHOTERICIN B LIPID COMPLEX [Suspect]
     Active Substance: AMPHOTERICIN B
     Indication: LEISHMANIASIS
     Dosage: 3 MG/KG, UNK, DAY 38
     Route: 042
  10. AMPHOTERICIN B LIPID COMPLEX [Suspect]
     Active Substance: AMPHOTERICIN B
     Dosage: 3 MG/KG, UNK, DAY 31
     Route: 042
  11. GLUCANTIME [Suspect]
     Active Substance: MEGLUMINE ANTIMONIATE
     Indication: LEISHMANIASIS
     Dosage: 20 MG/KG/DIE FOR 2 CYCLES OF 15 DAYS EACH
     Route: 030

REACTIONS (14)
  - Palatal swelling [Recovered/Resolved]
  - Leukopenia [Recovering/Resolving]
  - Pyrexia [Recovered/Resolved]
  - Leishmaniasis [Recovering/Resolving]
  - Mucocutaneous leishmaniasis [Recovering/Resolving]
  - Visceral leishmaniasis [Recovered/Resolved]
  - Abdominal pain [Recovered/Resolved]
  - Disease progression [Recovering/Resolving]
  - Splenomegaly [Recovering/Resolving]
  - Hypergammaglobulinaemia [Recovering/Resolving]
  - Headache [Recovered/Resolved]
  - Drug ineffective [Unknown]
  - Myalgia [Recovered/Resolved]
  - Mastication disorder [Recovering/Resolving]

NARRATIVE: CASE EVENT DATE: 19940101
